FAERS Safety Report 6814017-0 (Version None)
Quarter: 2010Q3

REPORT INFORMATION
  Report Type: 
  Country: None (occurrence: None)
  Receive Date: 20100702
  Receipt Date: 20100618
  Transmission Date: 20110219
  Serious: Yes (Hospitalization, Other)
  Sender: FDA-Public Use
  Company Number: PHHY2010JP41382

PATIENT
  Sex: Female

DRUGS (14)
  1. NEORAL [Suspect]
     Indication: HEART TRANSPLANT
     Dosage: 1 MG TO 100 MG
     Dates: start: 20070820, end: 20070825
  2. NEORAL [Suspect]
     Dosage: 150-200MG/DAY
     Dates: start: 20071015, end: 20080305
  3. NEORAL [Suspect]
     Dosage: 100 MG TO 150 MG DAILY
     Dates: start: 20080305, end: 20100416
  4. SANDIMMUNE [Suspect]
     Indication: HEART TRANSPLANT
     Dosage: 10 MG TO 50 MG
     Route: 042
     Dates: start: 20070901, end: 20071014
  5. CERTICAN [Suspect]
     Indication: HEART TRANSPLANT
     Dosage: 0.5 MG
     Route: 048
     Dates: start: 20080808
  6. MYCOPHENOLATE MOFETIL [Concomitant]
     Indication: HEART TRANSPLANT
     Dosage: 2.5 MG
     Route: 048
     Dates: start: 20070820
  7. MEVALOTIN [Concomitant]
     Dosage: 10 MG
     Route: 048
     Dates: start: 20070820
  8. GASTER [Concomitant]
     Dosage: 20 MG
     Route: 048
  9. ARTIST [Concomitant]
     Dosage: 10 MG
     Route: 048
  10. RENIVACE [Concomitant]
     Dosage: 2.5 MG
     Route: 048
     Dates: start: 20071021
  11. COTRIM [Concomitant]
     Dosage: 1 DF
     Route: 048
     Dates: start: 20070820, end: 20090114
  12. DIFLUCAN [Concomitant]
     Dosage: 100 MG
     Route: 048
     Dates: start: 20071010, end: 20080305
  13. PROGRAF [Concomitant]
     Indication: HEART TRANSPLANT
     Dosage: 4 MG
     Route: 048
     Dates: start: 20100416
  14. ADRENAL HORMONE PREPARATIONS [Concomitant]
     Indication: HEART TRANSPLANT
     Dosage: 60 MG
     Route: 048
     Dates: start: 20070820

REACTIONS (8)
  - CHEST WALL OPERATION [None]
  - CORONARY ARTERY DISEASE [None]
  - HEART TRANSPLANT REJECTION [None]
  - MEDIASTINITIS [None]
  - STAPHYLOCOCCAL INFECTION [None]
  - STERNAL WIRING [None]
  - WOUND DRAINAGE [None]
  - WOUND TREATMENT [None]
